FAERS Safety Report 20818158 (Version 6)
Quarter: 2025Q1

REPORT INFORMATION
  Report Type: Spontaneous
  Country: US (occurrence: US)
  Receive Date: 20220512
  Receipt Date: 20250326
  Transmission Date: 20250408
  Serious: Yes (Other)
  Sender: PFIZER
  Company Number: US-PFIZER INC-202200036946

PATIENT
  Age: 67 Year
  Sex: Female

DRUGS (2)
  1. XELJANZ [Suspect]
     Active Substance: TOFACITINIB CITRATE
     Indication: Rheumatoid arthritis
     Dosage: 5 MG, 2X/DAY
  2. XELJANZ [Suspect]
     Active Substance: TOFACITINIB CITRATE
     Dosage: 10 MG, DAILY

REACTIONS (8)
  - Knee arthroplasty [Unknown]
  - Hip arthroplasty [Unknown]
  - Mobility decreased [Unknown]
  - Movement disorder [Unknown]
  - Musculoskeletal discomfort [Unknown]
  - Nerve compression [Unknown]
  - Nervous system disorder [Unknown]
  - Drug ineffective [Unknown]
